FAERS Safety Report 7039458-0 (Version None)
Quarter: 2010Q4

REPORT INFORMATION
  Report Type: 
  Country: None (occurrence: None)
  Receive Date: 20101012
  Receipt Date: 20101001
  Transmission Date: 20110411
  Serious: Yes (Other)
  Sender: FDA-Public Use
  Company Number: CA-ROCHE-702244

PATIENT
  Sex: Female
  Weight: 65 kg

DRUGS (4)
  1. CAPECITABINE [Suspect]
     Dosage: FREQUENCY: 14 DAYS ON FOLLOWED BY 7 DAYS REST. FORM: INFUSIONS
     Route: 042
     Dates: start: 20100201, end: 20100413
  2. BEVACIZUMAB [Suspect]
     Route: 042
     Dates: start: 20100203, end: 20100507
  3. BEVACIZUMAB [Suspect]
     Dosage: FORM: INFUSIONS
     Route: 042
     Dates: start: 20100507, end: 20101001
  4. TAXOL [Suspect]
     Dosage: FORM: INFUSIONS
     Route: 065
     Dates: start: 20100423

REACTIONS (3)
  - COUGH [None]
  - PYREXIA [None]
  - TUMOUR HAEMORRHAGE [None]
